FAERS Safety Report 4274112-X (Version None)
Quarter: 2004Q1

REPORT INFORMATION
  Report Type: 
  Country: None (occurrence: None)
  Receive Date: 20040120
  Receipt Date: 20040109
  Transmission Date: 20041129
  Serious: Yes (Hospitalization)
  Sender: FDA-Public Use
  Company Number: JP-GLAXOSMITHKLINE-B0319552A

PATIENT
  Age: 1 Year

DRUGS (3)
  1. CEFTAZIDIME [Suspect]
     Indication: PYREXIA
     Dosage: 900MG PER DAY
     Route: 042
     Dates: start: 20031119, end: 20031123
  2. PIPERACILLIN SODIUM [Concomitant]
     Route: 035
  3. PIPERACILLIN SODIUM [Concomitant]
     Indication: PYREXIA

REACTIONS (2)
  - CONDITION AGGRAVATED [None]
  - PYREXIA [None]
